FAERS Safety Report 13086861 (Version 2)
Quarter: 2017Q1

REPORT INFORMATION
  Report Type: Spontaneous
  Country: US (occurrence: US)
  Receive Date: 20170104
  Receipt Date: 20170113
  Transmission Date: 20170428
  Serious: Yes (Death, Hospitalization)
  Sender: FDA-Public Use
  Company Number: US-SENTYNL THERAPEUTICS, INC.  -1061549

PATIENT
  Age: 31 Year
  Sex: Female

DRUGS (5)
  1. ABSTRAL [Suspect]
     Active Substance: FENTANYL CITRATE
     Indication: ABDOMINAL PAIN
     Route: 060
     Dates: start: 20141028
  2. DILAUDID [Concomitant]
     Active Substance: HYDROMORPHONE HYDROCHLORIDE
  3. CISPLATIN. [Concomitant]
     Active Substance: CISPLATIN
     Dates: start: 20141103, end: 20141126
  4. GEMZAR [Concomitant]
     Active Substance: GEMCITABINE HYDROCHLORIDE
     Dates: start: 20141103, end: 20141126
  5. FENTANYL TRANSDERMAL SYSTEM [Concomitant]
     Active Substance: FENTANYL
     Route: 062

REACTIONS (6)
  - Breast cancer metastatic [Fatal]
  - Chest pain [Recovered/Resolved]
  - Pleural effusion [Recovered/Resolved]
  - Pleural effusion [Unknown]
  - Peripheral swelling [Unknown]
  - Neutropenia [Unknown]

NARRATIVE: CASE EVENT DATE: 201412
